FAERS Safety Report 9344933 (Version 1)
Quarter: 2013Q2

REPORT INFORMATION
  Report Type: Report from Study
  Country: AR (occurrence: AR)
  Receive Date: 20130612
  Receipt Date: 20130612
  Transmission Date: 20140414
  Serious: Yes (Hospitalization)
  Sender: FDA-Public Use
  Company Number: PHHY2013AR059673

PATIENT
  Sex: Female

DRUGS (2)
  1. EXFORGE [Suspect]
     Indication: HYPERTENSION
     Dosage: 1 DF(160/5MG), DAILY
     Route: 048
  2. DIOVAN [Suspect]
     Dosage: 160 MG, UNK

REACTIONS (2)
  - Malaise [Unknown]
  - Hypertension [Unknown]
